FAERS Safety Report 9465557 (Version 2)
Quarter: 2013Q3

REPORT INFORMATION
  Report Type: Spontaneous
  Country: DE (occurrence: DE)
  Receive Date: 20130820
  Receipt Date: 20130820
  Transmission Date: 20140515
  Serious: Yes (Life-Threatening, Hospitalization, Other)
  Sender: FDA-Public Use
  Company Number: DE-SANOFI-AVENTIS-2012SA081945

PATIENT
  Age: 64 Year
  Sex: Male

DRUGS (5)
  1. LANTUS [Suspect]
     Indication: TYPE 2 DIABETES MELLITUS
     Route: 058
  2. LEVOFLOXACIN [Suspect]
     Route: 065
  3. METAMIZOLE [Suspect]
     Route: 065
  4. SAXAGLIPTIN HYDROCHLORIDE [Suspect]
     Indication: TYPE 2 DIABETES MELLITUS
     Route: 065
     Dates: start: 20110119
  5. HUMALOG [Suspect]
     Indication: TYPE 2 DIABETES MELLITUS
     Route: 065

REACTIONS (6)
  - Sepsis [Recovered/Resolved]
  - Skin ulcer [Recovered/Resolved]
  - Swelling [Recovered/Resolved]
  - Pain [Recovered/Resolved]
  - Renal failure acute [Recovered/Resolved]
  - Hypersensitivity [Recovered/Resolved]
